FAERS Safety Report 25573122 (Version 1)
Quarter: 2025Q3

REPORT INFORMATION
  Report Type: Spontaneous
  Country: US (occurrence: None)
  Receive Date: 20250717
  Receipt Date: 20250717
  Transmission Date: 20251020
  Serious: Yes (Hospitalization)
  Sender: FDA-CTU
  Company Number: None

PATIENT
  Age: 57 Year
  Sex: Female

DRUGS (7)
  1. COLLAGENASE SANTYL [Suspect]
     Active Substance: COLLAGENASE CLOSTRIDIUM HISTOLYTICUM
     Indication: Decubitus ulcer
     Dosage: OTHER STRENGTH : 250 U/GM;?FREQUENCY : TWICE A DAY;?
     Route: 061
     Dates: start: 20240101
  2. AQUACEL AG 3.5^X4^ PADS [Concomitant]
  3. MOTRIN [Concomitant]
     Active Substance: IBUPROFEN
  4. FOLIC ACID [Concomitant]
     Active Substance: FOLIC ACID
  5. GENTAMICIN 0.1% CREAM [Concomitant]
  6. NORCO [Concomitant]
     Active Substance: ACETAMINOPHEN\HYDROCODONE BITARTRATE
  7. VITAMIN B12 [Concomitant]
     Active Substance: CYANOCOBALAMIN

REACTIONS (1)
  - Wound infection [None]

NARRATIVE: CASE EVENT DATE: 20250712
